FAERS Safety Report 14669752 (Version 1)
Quarter: 2018Q1

REPORT INFORMATION
  Report Type: Spontaneous
  Country: US (occurrence: US)
  Receive Date: 20180322
  Receipt Date: 20180322
  Transmission Date: 20180509
  Serious: No
  Sender: FDA-Public Use
  Company Number: US-COVIS PHARMA B.V.-2017COV01159

PATIENT
  Age: 85 Year
  Sex: Female

DRUGS (1)
  1. SULAR [Suspect]
     Active Substance: NISOLDIPINE

REACTIONS (3)
  - Product substitution issue [Unknown]
  - Blood uric acid increased [Unknown]
  - Gout [Unknown]
